FAERS Safety Report 9110213 (Version 2)
Quarter: 2013Q1

REPORT INFORMATION
  Report Type: Spontaneous
  Country: NL (occurrence: NL)
  Receive Date: 20130222
  Receipt Date: 20130308
  Transmission Date: 20140127
  Serious: Yes (Life-Threatening)
  Sender: FDA-Public Use
  Company Number: NL-JNJFOC-20130204063

PATIENT
  Age: 48 Year
  Sex: Female
  Weight: 55 kg

DRUGS (1)
  1. RISPERDAL [Suspect]
     Indication: PSYCHOTIC DISORDER
     Route: 048
     Dates: start: 19960101, end: 20120410

REACTIONS (28)
  - Brain injury [Recovering/Resolving]
  - Suicidal ideation [Recovering/Resolving]
  - Nervous system disorder [Recovering/Resolving]
  - Tardive dyskinesia [Recovering/Resolving]
  - Balance disorder [Recovering/Resolving]
  - Disturbance in attention [Recovering/Resolving]
  - Amnesia [Recovering/Resolving]
  - Craniocerebral injury [Recovering/Resolving]
  - Fatigue [Recovering/Resolving]
  - Pain [Recovering/Resolving]
  - Tinnitus [Recovering/Resolving]
  - Insomnia [Recovering/Resolving]
  - Night sweats [Recovering/Resolving]
  - Mental impairment [Recovering/Resolving]
  - Psychomotor hyperactivity [Recovering/Resolving]
  - Feeling abnormal [Recovering/Resolving]
  - Convulsion [Recovering/Resolving]
  - Shock [Recovering/Resolving]
  - Muscle spasms [Recovering/Resolving]
  - Grimacing [Recovering/Resolving]
  - Muscle spasms [Recovering/Resolving]
  - Adrenal disorder [Recovering/Resolving]
  - Arthralgia [Recovering/Resolving]
  - Back pain [Recovering/Resolving]
  - Aggression [Recovering/Resolving]
  - Mental disorder [Recovering/Resolving]
  - Fatigue [Recovering/Resolving]
  - Fatigue [Recovering/Resolving]
